FAERS Safety Report 8774831 (Version 1)
Quarter: 2012Q4

REPORT INFORMATION
  Report Type: 
  Country: CA (occurrence: CA)
  Receive Date: 20120910
  Receipt Date: 20120910
  Transmission Date: 20130627
  Serious: Yes (Other)
  Sender: FDA-Public Use
  Company Number: CA-ASTRAZENECA-2012SE69580

PATIENT
  Age: 82 Year
  Sex: Male

DRUGS (4)
  1. ENTOCORT [Suspect]
     Indication: COLITIS MICROSCOPIC
     Route: 048
     Dates: start: 2004, end: 2010
  2. ENTOCORT [Suspect]
     Indication: COLITIS MICROSCOPIC
     Route: 048
     Dates: start: 2010
  3. ARICEPT [Concomitant]
     Route: 048
  4. STATIN [Concomitant]
     Indication: BLOOD CHOLESTEROL INCREASED

REACTIONS (3)
  - Skin fragility [Unknown]
  - Skin atrophy [Unknown]
  - Increased tendency to bruise [Unknown]
